FAERS Safety Report 9191345 (Version 1)
Quarter: 2013Q1

REPORT INFORMATION
  Report Type: Spontaneous
  Country: GB (occurrence: GB)
  Receive Date: 20130326
  Receipt Date: 20130326
  Transmission Date: 20140127
  Serious: Yes (Hospitalization)
  Sender: FDA-Public Use
  Company Number: GB-PFIZER INC-2005061566

PATIENT
  Age: 17 Year
  Sex: Female

DRUGS (1)
  1. IBUPROFEN [Suspect]
     Indication: PRODUCT USED FOR UNKNOWN INDICATION
     Dosage: 14 GRAMS ONCE
     Route: 048

REACTIONS (10)
  - Pyrexia [Recovered/Resolved]
  - Hypertension [Recovered/Resolved]
  - Tachypnoea [Recovered/Resolved]
  - Abdominal rigidity [Recovered/Resolved]
  - White blood cell count increased [Recovered/Resolved]
  - Tachycardia [Recovered/Resolved]
  - Abdominal pain upper [Recovered/Resolved]
  - Abdominal pain [Recovered/Resolved]
  - Duodenal ulcer perforation [Recovered/Resolved]
  - Overdose [Unknown]
